FAERS Safety Report 6981372-0 (Version None)
Quarter: 2010Q3

REPORT INFORMATION
  Report Type: 
  Country: None (occurrence: None)
  Receive Date: 20100914
  Receipt Date: 20100831
  Transmission Date: 20110219
  Serious: Yes (Hospitalization)
  Sender: FDA-Public Use
  Company Number: ES-MYLANLABS-2010S1016023

PATIENT
  Age: 75 Year
  Sex: Female

DRUGS (1)
  1. MERCAPTOPURINE [Suspect]
     Indication: AUTOIMMUNE HEPATITIS
     Dosage: (0.75 MG/KG/DAY)
     Route: 065

REACTIONS (1)
  - VISCERAL LEISHMANIASIS [None]
